FAERS Safety Report 8624094-2 (Version None)
Quarter: 2012Q3

REPORT INFORMATION
  Report Type: 
  Country: None (occurrence: None)
  Receive Date: 20120827
  Receipt Date: 20120818
  Transmission Date: 20120928
  Serious: Yes (Hospitalization, Other)
  Sender: FDA-Public Use
  Company Number: BR-ASTRAZENECA-2012SE60557

PATIENT
  Age: 58 Year
  Sex: Female
  Weight: 50 kg

DRUGS (1)
  1. NEXIUM [Suspect]
     Indication: GASTRIC DISORDER
     Route: 048
     Dates: start: 20110101

REACTIONS (2)
  - LUNG NEOPLASM MALIGNANT [None]
  - UTERINE CANCER [None]
